FAERS Safety Report 6418695-X (Version None)
Quarter: 2009Q4

REPORT INFORMATION
  Report Type: 
  Country: None (occurrence: None)
  Receive Date: 20091026
  Receipt Date: 20091013
  Transmission Date: 20100525
  Serious: Yes (Life-Threatening, Hospitalization, Other)
  Sender: FDA-Public Use
  Company Number: ADR38942009

PATIENT
  Age: 72 Year
  Sex: Female

DRUGS (4)
  1. SIMVASTATIN [Suspect]
     Dosage: 40 MG, ORAL
     Route: 048
     Dates: start: 20080715
  2. CLOPIDOGREL HYDROGEN SULPHATE (75 MG) [Concomitant]
  3. METFORMIN HCL [Concomitant]
  4. PERINDOPRIL (2 MG) [Concomitant]

REACTIONS (7)
  - ANAEMIA [None]
  - COMA SCALE ABNORMAL [None]
  - CONVULSION [None]
  - LETHARGY [None]
  - MALAISE [None]
  - SYNCOPE [None]
  - THROMBOTIC THROMBOCYTOPENIC PURPURA [None]
